FAERS Safety Report 4396638-0 (Version None)
Quarter: 2004Q3

REPORT INFORMATION
  Report Type: 
  Country: None (occurrence: None)
  Receive Date: 20040708
  Receipt Date: 20040701
  Transmission Date: 20050211
  Serious: Yes (Hospitalization)
  Sender: FDA-Public Use
  Company Number: STA-AE-04-MTX-284

PATIENT
  Age: 75 Year
  Sex: Female

DRUGS (9)
  1. METHOTREXATE [Suspect]
     Indication: RHEUMATOID ARTHRITIS
     Dosage: 12.5 MG 1X PER 1 WK, ORAL
     Route: 048
     Dates: start: 20020528, end: 20030101
  2. METHOTREXATE [Suspect]
     Indication: RHEUMATOID ARTHRITIS
     Dosage: 7.5 MG 1X PER 1WK, ORAL
     Route: 048
     Dates: start: 20030101
  3. PREDNISONE TAB [Concomitant]
  4. ACTONEL (RISENDRONATE) [Concomitant]
  5. CALCICHEW (CALCIUM CARBONATE) [Concomitant]
  6. FOLIC ACID [Concomitant]
  7. PARACETAMOL (PARACETAMOL) [Concomitant]
  8. PANTOZOL (PANTOPRAZOLE SODIUM) [Concomitant]
  9. ... [Concomitant]

REACTIONS (19)
  - AGEUSIA [None]
  - ARTHROPATHY [None]
  - BLOOD PRESSURE INCREASED [None]
  - CALCIUM DEFICIENCY [None]
  - COGNITIVE DETERIORATION [None]
  - DISEASE PROGRESSION [None]
  - DISORIENTATION [None]
  - ENDOTHELIAL DYSFUNCTION [None]
  - FATIGUE [None]
  - HEPATIC FUNCTION ABNORMAL [None]
  - INFLAMMATION [None]
  - KYPHOSIS [None]
  - MALAISE [None]
  - MEMORY IMPAIRMENT [None]
  - NUCLEAR MAGNETIC RESONANCE IMAGING BRAIN ABNORMAL [None]
  - OSTEOPENIA [None]
  - RHEUMATOID ARTHRITIS [None]
  - VASCULAR DEMENTIA [None]
  - WEIGHT DECREASED [None]
